FAERS Safety Report 9910984 (Version 2)
Quarter: 2014Q1

REPORT INFORMATION
  Report Type: Spontaneous
  Country: US (occurrence: US)
  Receive Date: 20140219
  Receipt Date: 20140219
  Transmission Date: 20141002
  Serious: No
  Sender: FDA-Public Use
  Company Number: US-GILEAD-2012-0055918

PATIENT
  Sex: Female
  Weight: 69.84 kg

DRUGS (13)
  1. LETAIRIS [Suspect]
     Indication: PULMONARY ARTERIAL HYPERTENSION
     Dosage: 5 MG, UNK
     Route: 048
     Dates: start: 20120111, end: 20120529
  2. ACETAMINOPHEN [Concomitant]
  3. AMILORIDE W/HYDROCHLOROTHIAZIDE [Concomitant]
     Dosage: UNK
     Dates: start: 20120112
  4. ATENOLOL [Concomitant]
     Dosage: UNK
     Dates: start: 20120112
  5. BENAZEPRIL [Concomitant]
     Dosage: UNK
     Dates: start: 20120112
  6. BUMETANIDE [Concomitant]
     Dosage: UNK
     Dates: start: 20120417
  7. CALCIUM CARBONATE [Concomitant]
  8. CYANOCOBALAMIN [Concomitant]
  9. FISH OIL [Concomitant]
  10. METHYLSULFONYLMETHANE [Concomitant]
  11. MULTIVITAMINS, COMBINATIONS [Concomitant]
  12. WARFARIN [Concomitant]
     Dosage: UNK
     Dates: start: 20120112
  13. DIGOXIN [Suspect]
     Dosage: UNK
     Dates: start: 20120112

REACTIONS (7)
  - Dyspnoea exertional [Unknown]
  - Cough [Unknown]
  - Chest pain [Unknown]
  - Flushing [Unknown]
  - Headache [Unknown]
  - Swelling [Unknown]
  - Palpitations [Unknown]
